FAERS Safety Report 8189168-1 (Version None)
Quarter: 2012Q1

REPORT INFORMATION
  Report Type: 
  Country: None (occurrence: None)
  Receive Date: 20120306
  Receipt Date: 20120306
  Transmission Date: 20120608
  Serious: No
  Sender: FDA-Public Use
  Company Number: None

PATIENT
  Age: 56 Year
  Sex: Female
  Weight: 58.0604 kg

DRUGS (2)
  1. MUCINEX [Suspect]
     Indication: NASAL CONGESTION
     Dosage: 1 TABLET EVERY 12 HRS
     Dates: start: 20111201
  2. MUCINEX [Suspect]
     Indication: SINUS CONGESTION
     Dosage: 1 TABLET EVERY 12 HRS
     Dates: start: 20111201

REACTIONS (2)
  - PRODUCT SOLUBILITY ABNORMAL [None]
  - MEDICATION RESIDUE [None]
